FAERS Safety Report 9683643 (Version 1)
Quarter: 2013Q4

REPORT INFORMATION
  Report Type: Spontaneous
  Country: US (occurrence: US)
  Receive Date: 20131112
  Receipt Date: 20131112
  Transmission Date: 20140711
  Serious: No
  Sender: FDA-Public Use
  Company Number: US-PFIZER INC-2013319636

PATIENT
  Sex: Female

DRUGS (5)
  1. EFFEXOR [Suspect]
     Indication: DEPRESSION
     Dosage: 37.5 MG, 3X/DAY
     Dates: start: 2001
  2. LINZESS [Suspect]
     Indication: GASTROINTESTINAL HYPOMOTILITY
     Dosage: 290 UG, 1X/DAY
     Route: 048
     Dates: start: 201308, end: 20131027
  3. LINZESS [Suspect]
     Indication: COLECTOMY
     Dosage: 145 UG, 1X/DAY
     Route: 048
     Dates: start: 20131028, end: 20131028
  4. LINZESS [Suspect]
     Dosage: 145 UG, 2X/DAY
     Route: 048
     Dates: start: 20131029
  5. ATIVAN [Concomitant]
     Indication: ANXIETY
     Dosage: UNK, 3X/DAY
     Dates: start: 2001

REACTIONS (7)
  - Diarrhoea [Not Recovered/Not Resolved]
  - Insomnia [Recovered/Resolved]
  - Hypersomnia [Not Recovered/Not Resolved]
  - Panic attack [Recovered/Resolved]
  - Drug ineffective [Recovered/Resolved]
  - Flatulence [Recovered/Resolved]
  - Off label use [Unknown]
